FAERS Safety Report 7798631-4 (Version None)
Quarter: 2011Q4

REPORT INFORMATION
  Report Type: 
  Country: None (occurrence: None)
  Receive Date: 20111005
  Receipt Date: 20110927
  Transmission Date: 20120403
  Serious: Yes (Hospitalization, Other)
  Sender: FDA-Public Use
  Company Number: US-AMGEN-USASP2011047321

PATIENT
  Sex: Female

DRUGS (2)
  1. ENBREL [Suspect]
     Dosage: 50 MG, QWK
     Dates: start: 20070101
  2. ENBREL [Suspect]
     Indication: PSORIATIC ARTHROPATHY
     Dosage: 50 MG, QWK
     Route: 058
     Dates: start: 20110411

REACTIONS (5)
  - SPINAL COMPRESSION FRACTURE [None]
  - PNEUMONIA LEGIONELLA [None]
  - INTERVERTEBRAL DISC DEGENERATION [None]
  - PSORIATIC ARTHROPATHY [None]
  - PAIN [None]
